FAERS Safety Report 21762850 (Version 1)
Quarter: 2022Q4

REPORT INFORMATION
  Report Type: Spontaneous
  Country: US (occurrence: None)
  Receive Date: 20221220
  Receipt Date: 20221220
  Transmission Date: 20230113
  Serious: Yes (Hospitalization)
  Sender: FDA-Public Use
  Company Number: None

PATIENT
  Sex: Female

DRUGS (10)
  1. DROXIDOPA [Suspect]
     Active Substance: DROXIDOPA
     Indication: Autonomic neuropathy
     Route: 048
     Dates: start: 20210320
  2. AMITIZA [Concomitant]
     Active Substance: LUBIPROSTONE
  3. ASPIRIN [Concomitant]
     Active Substance: ASPIRIN
  4. BACLOFEN [Concomitant]
     Active Substance: BACLOFEN
  5. DULCOLAX NOS [Concomitant]
     Active Substance: BISACODYL OR DOCUSATE SODIUM
  6. LIPITOR [Concomitant]
     Active Substance: ATORVASTATIN CALCIUM
  7. METFORMIN [Concomitant]
     Active Substance: METFORMIN HYDROCHLORIDE
  8. NABUMETONE [Concomitant]
     Active Substance: NABUMETONE
  9. NORTHERA [Concomitant]
     Active Substance: DROXIDOPA
  10. OXYBUTYNIN [Concomitant]
     Active Substance: OXYBUTYNIN

REACTIONS (1)
  - Hospitalisation [None]
